FAERS Safety Report 24362647 (Version 1)
Quarter: 2024Q3

REPORT INFORMATION
  Report Type: Report from Study
  Country: CO (occurrence: CO)
  Receive Date: 20240925
  Receipt Date: 20240925
  Transmission Date: 20241016
  Serious: Yes (Other)
  Sender: ABBVIE
  Company Number: CO-ABBVIE-5903041

PATIENT
  Sex: Female
  Weight: 73 kg

DRUGS (3)
  1. RINVOQ [Suspect]
     Active Substance: UPADACITINIB
     Indication: Rheumatoid arthritis
     Dosage: FORM STRENGTH: 15 MILLIGRAM; FILM COATED TABLET
     Route: 048
     Dates: start: 20230905
  2. PREGABALIN [Suspect]
     Active Substance: PREGABALIN
     Indication: Pain
     Dosage: 2 (NOT UNIT REPORTED), LAST ADMIN DATE: JUN 2024
     Route: 048
     Dates: start: 202406
  3. PREGABALIN [Suspect]
     Active Substance: PREGABALIN
     Indication: Pain
     Dosage: 1 (NOT UNIT REPORTED)
     Route: 048
     Dates: start: 202406

REACTIONS (23)
  - Haemorrhage [Unknown]
  - Fall [Unknown]
  - Limb deformity [Unknown]
  - Hypertension [Not Recovered/Not Resolved]
  - Pain in extremity [Not Recovered/Not Resolved]
  - Therapeutic product effect incomplete [Not Recovered/Not Resolved]
  - Reflux gastritis [Not Recovered/Not Resolved]
  - Ligament sprain [Not Recovered/Not Resolved]
  - Inflammation [Not Recovered/Not Resolved]
  - Pelvic misalignment [Not Recovered/Not Resolved]
  - Hypoaesthesia [Not Recovered/Not Resolved]
  - Arthralgia [Not Recovered/Not Resolved]
  - Tachycardia [Not Recovered/Not Resolved]
  - Peripheral coldness [Not Recovered/Not Resolved]
  - Nasal discomfort [Not Recovered/Not Resolved]
  - Fibromyalgia [Not Recovered/Not Resolved]
  - Paraesthesia [Not Recovered/Not Resolved]
  - Headache [Not Recovered/Not Resolved]
  - Rhinalgia [Unknown]
  - Anaemia [Not Recovered/Not Resolved]
  - Gait disturbance [Not Recovered/Not Resolved]
  - Spinal pain [Not Recovered/Not Resolved]
  - Dysstasia [Not Recovered/Not Resolved]

NARRATIVE: CASE EVENT DATE: 20230101
